FAERS Safety Report 14560756 (Version 2)
Quarter: 2018Q2

REPORT INFORMATION
  Report Type: Spontaneous
  Country: PL (occurrence: PL)
  Receive Date: 20180222
  Receipt Date: 20180430
  Transmission Date: 20180711
  Serious: Yes (Hospitalization)
  Sender: FDA-Public Use
  Company Number: PL-AXELLIA-001395

PATIENT
  Age: 33 Year
  Sex: Male

DRUGS (3)
  1. VANCOMYCIN [Suspect]
     Active Substance: VANCOMYCIN
     Indication: POSTOPERATIVE WOUND INFECTION
     Dosage: DOSE: 1 G, BID
     Route: 042
     Dates: start: 20170113, end: 20170123
  2. NEOMYCIN. [Suspect]
     Active Substance: NEOMYCIN
     Indication: POSTOPERATIVE WOUND INFECTION
     Route: 061
  3. VANCOMYCIN [Suspect]
     Active Substance: VANCOMYCIN
     Indication: STAPHYLOCOCCAL INFECTION
     Dosage: LOCAL APPLICATION
     Route: 061
     Dates: start: 20170114, end: 20170114

REACTIONS (2)
  - Ulcer [Recovered/Resolved]
  - Drug ineffective [Unknown]
